FAERS Safety Report 5415255-4 (Version None)
Quarter: 2007Q3

REPORT INFORMATION
  Report Type: 
  Country: None (occurrence: None)
  Receive Date: 20070815
  Receipt Date: 20070810
  Transmission Date: 20080115
  Serious: Yes (Hospitalization)
  Sender: FDA-Public Use
  Company Number: FR-ELI_LILLY_AND_COMPANY-FR200707003854

PATIENT
  Age: 53 Year
  Sex: Female
  Weight: 105 kg

DRUGS (5)
  1. FORTEO [Suspect]
     Indication: OSTEOPOROSIS
     Dosage: 20 UG, DAILY (1/D)
     Route: 058
     Dates: start: 20061025
  2. CORTISONE ACETATE TAB [Concomitant]
     Indication: ASTHMA
     Dosage: 40 MG, DAILY (1/D)
  3. INSULINE [Concomitant]
  4. CALCIUM D [Concomitant]
  5. CORTANCYL [Concomitant]
     Dosage: 60 MG, DAILY (1/D)

REACTIONS (2)
  - RIB FRACTURE [None]
  - THORACIC VERTEBRAL FRACTURE [None]
